FAERS Safety Report 6615234-5 (Version None)
Quarter: 2010Q1

REPORT INFORMATION
  Report Type: 
  Country: None (occurrence: None)
  Receive Date: 20100305
  Receipt Date: 20100222
  Transmission Date: 20100710
  Serious: Yes (Other)
  Sender: FDA-Public Use
  Company Number: US-BRACCO-004121

PATIENT

DRUGS (1)
  1. READI-CAT [Suspect]
     Indication: DIAGNOSTIC PROCEDURE
     Route: 065

REACTIONS (1)
  - DRUG ADMINISTRATION ERROR [None]
